FAERS Safety Report 16180743 (Version 1)
Quarter: 2019Q2

REPORT INFORMATION
  Report Type: Spontaneous
  Country: US (occurrence: US)
  Receive Date: 20190410
  Receipt Date: 20190410
  Transmission Date: 20190711
  Serious: Yes (Other)
  Sender: FDA-Public Use
  Company Number: US-ASTRAZENECA-2019SE54857

PATIENT
  Sex: Female
  Weight: 79.8 kg

DRUGS (4)
  1. RAMIPRIL. [Suspect]
     Active Substance: RAMIPRIL
     Route: 065
  2. PRILOSEC [Suspect]
     Active Substance: OMEPRAZOLE MAGNESIUM
     Route: 048
  3. HUMIRA [Suspect]
     Active Substance: ADALIMUMAB
     Indication: RHEUMATOID ARTHRITIS
     Dosage: 40.0MG UNKNOWN
     Route: 058
     Dates: start: 201702, end: 20180220
  4. CELEBREX [Suspect]
     Active Substance: CELECOXIB
     Route: 065

REACTIONS (6)
  - Bone disorder [Recovered/Resolved]
  - Skin exfoliation [Not Recovered/Not Resolved]
  - Renal disorder [Recovered/Resolved]
  - Rotator cuff syndrome [Unknown]
  - Weight decreased [Not Recovered/Not Resolved]
  - Renal failure [Recovered/Resolved]
